FAERS Safety Report 6688911-8 (Version None)
Quarter: 2010Q2

REPORT INFORMATION
  Report Type: 
  Country: None (occurrence: None)
  Receive Date: 20100409
  Receipt Date: 20100329
  Transmission Date: 20101027
  Serious: No
  Sender: FDA-Public Use
  Company Number: B0645925A

PATIENT
  Age: 63 Year
  Sex: Male

DRUGS (7)
  1. VALACYCLOVIR HCL [Suspect]
     Indication: GENITAL HERPES
     Dosage: PER DAY
  2. ACYCLOVIR [Suspect]
     Indication: GENITAL HERPES
  3. ABACAVIR SULFATE [Concomitant]
  4. TENOFOVIR [Concomitant]
  5. EMTRICITABINE [Concomitant]
  6. DARUNAVIR [Concomitant]
  7. RITONAVIR [Concomitant]

REACTIONS (6)
  - ANAL NEOPLASM [None]
  - DISEASE RECURRENCE [None]
  - DRUG RESISTANCE [None]
  - GENITAL HERPES [None]
  - HERPES SIMPLEX [None]
  - ODYNOPHAGIA [None]
